FAERS Safety Report 14306566 (Version 1)
Quarter: 2017Q4

REPORT INFORMATION
  Report Type: Spontaneous
  Country: US (occurrence: US)
  Receive Date: 20171220
  Receipt Date: 20171220
  Transmission Date: 20180321
  Serious: No
  Sender: FDA-Public Use
  Company Number: US-APOTEX-2017AP017120

PATIENT
  Age: 23 Year
  Sex: Female

DRUGS (3)
  1. SILDENAFIL. [Suspect]
     Active Substance: SILDENAFIL
     Indication: PULMONARY HYPERTENSION
     Dosage: UNK
     Route: 065
  2. FENTANYL. [Suspect]
     Active Substance: FENTANYL
     Indication: LABOUR PAIN
     Dosage: UNK
     Route: 037
  3. ENOXAPARIN [Suspect]
     Active Substance: ENOXAPARIN
     Indication: PULMONARY HYPERTENSION
     Dosage: UNK
     Route: 065

REACTIONS (1)
  - Exposure during pregnancy [Unknown]
